FAERS Safety Report 25100075 (Version 1)
Quarter: 2025Q1

REPORT INFORMATION
  Report Type: Spontaneous
  Country: US (occurrence: US)
  Receive Date: 20250320
  Receipt Date: 20250320
  Transmission Date: 20250409
  Serious: Yes (Hospitalization, Other)
  Sender: MEDICAP LABORATORIES
  Company Number: US-Medicap-000007

PATIENT
  Age: 14 Year
  Sex: Female

DRUGS (1)
  1. METFORMIN [Suspect]
     Active Substance: METFORMIN HYDROCHLORIDE
     Indication: Product used for unknown indication
     Route: 065

REACTIONS (8)
  - Intentional overdose [Unknown]
  - Hypoglycaemia [Recovered/Resolved]
  - Hypothermia [Unknown]
  - Electrocardiogram QT prolonged [Unknown]
  - Abdominal pain [Unknown]
  - Nausea [Unknown]
  - Vomiting [Unknown]
  - Blood lactic acid increased [Unknown]
